FAERS Safety Report 5299734-9 (Version None)
Quarter: 2007Q2

REPORT INFORMATION
  Report Type: 
  Country: None (occurrence: None)
  Receive Date: 20070410
  Receipt Date: 20070329
  Transmission Date: 20071010
  Serious: Yes (Disabling, Other)
  Sender: FDA-Public Use
  Company Number: 430008M07DEU

PATIENT
  Age: 65 Year
  Sex: Female

DRUGS (14)
  1. MITOXANTRONE [Suspect]
     Indication: MULTIPLE SCLEROSIS
     Dosage: SEE IMAGE
     Route: 042
     Dates: start: 20050110, end: 20050110
  2. MITOXANTRONE [Suspect]
     Indication: MULTIPLE SCLEROSIS
     Dosage: SEE IMAGE
     Route: 042
     Dates: start: 20050426, end: 20050426
  3. MITOXANTRONE [Suspect]
     Indication: MULTIPLE SCLEROSIS
     Dosage: SEE IMAGE
     Route: 042
     Dates: start: 20050729, end: 20050729
  4. MITOXANTRONE [Suspect]
     Indication: MULTIPLE SCLEROSIS
     Dosage: SEE IMAGE
     Route: 042
     Dates: start: 20051028, end: 20051028
  5. MITOXANTRONE [Suspect]
     Indication: MULTIPLE SCLEROSIS
     Dosage: SEE IMAGE
     Route: 042
     Dates: start: 20060117, end: 20060117
  6. MITOXANTRONE [Suspect]
     Indication: MULTIPLE SCLEROSIS
     Dosage: SEE IMAGE
     Route: 042
     Dates: start: 20060418, end: 20060418
  7. MITOXANTRONE [Suspect]
     Indication: MULTIPLE SCLEROSIS
     Dosage: SEE IMAGE
     Route: 042
     Dates: start: 20060824, end: 20060824
  8. MITOXANTRONE [Suspect]
     Indication: MULTIPLE SCLEROSIS
     Dosage: SEE IMAGE
     Route: 042
     Dates: start: 20070109, end: 20070109
  9. INFECTOTRIMET (TRIMETHOPRIM) [Concomitant]
  10. LEKOVIT CA [Concomitant]
  11. PROVELLA-14 [Concomitant]
  12. LIORESAL [Concomitant]
  13. SPASMEX (TROSPIUM CHLORIDE) [Concomitant]
  14. NIPAMIDE [Concomitant]

REACTIONS (1)
  - RENAL CELL CARCINOMA STAGE UNSPECIFIED [None]
